FAERS Safety Report 4432112-0 (Version None)
Quarter: 2004Q3

REPORT INFORMATION
  Report Type: 
  Country: None (occurrence: None)
  Receive Date: 20040819
  Receipt Date: 20040811
  Transmission Date: 20050211
  Serious: Yes (Death)
  Sender: FDA-Public Use
  Company Number: S04-USA-04856-01

PATIENT
  Age: 62 Year
  Sex: Male

DRUGS (2)
  1. LEXAPRO [Suspect]
     Indication: DEPRESSION
     Dates: start: 20020901, end: 20040101
  2. LEXAPRO [Suspect]
     Indication: DEPRESSION
     Dates: start: 20040101, end: 20040606

REACTIONS (12)
  - AGITATION [None]
  - COMPLETED SUICIDE [None]
  - COMPULSIONS [None]
  - CONDITION AGGRAVATED [None]
  - CRYING [None]
  - DEPRESSION [None]
  - DYSPEPSIA [None]
  - FLATULENCE [None]
  - INSOMNIA [None]
  - IRRITABILITY [None]
  - LOSS OF LIBIDO [None]
  - TREMOR [None]
